FAERS Safety Report 6555078-6 (Version None)
Quarter: 2010Q1

REPORT INFORMATION
  Report Type: 
  Country: None (occurrence: None)
  Receive Date: 20100126
  Receipt Date: 20100126
  Transmission Date: 20100710
  Serious: Yes (Life-Threatening, Hospitalization, Other)
  Sender: FDA-Public Use
  Company Number: None

PATIENT
  Sex: Female
  Weight: 58.9676 kg

DRUGS (4)
  1. METRONIDAZOLE [Suspect]
     Indication: FUNGAL INFECTION
     Dosage: DISP #2 DAILY DAILY BID ORAL
     Route: 048
     Dates: start: 20091221, end: 20091230
  2. METRONIDAZOLE [Suspect]
     Indication: VAGINITIS BACTERIAL
     Dosage: DISP #2 DAILY DAILY BID ORAL
     Route: 048
     Dates: start: 20091221, end: 20091230
  3. DEPO-PROVERA [Suspect]
     Indication: CONTRACEPTION
     Dosage: 1 INJECTION EVERY 3 MONTHS INJECTION
     Route: 058
     Dates: start: 20100108
  4. ANTIABUSE [Concomitant]

REACTIONS (2)
  - OBSTRUCTIVE AIRWAYS DISORDER [None]
  - PHARYNGEAL OEDEMA [None]
